FAERS Safety Report 5565753-8 (Version None)
Quarter: 2007Q4

REPORT INFORMATION
  Report Type: 
  Country: None (occurrence: None)
  Receive Date: 20071218
  Receipt Date: 20071213
  Transmission Date: 20080405
  Serious: No
  Sender: FDA-Public Use
  Company Number: US-GILEAD-2007-0014355

PATIENT
  Sex: Female
  Weight: 51.983 kg

DRUGS (1)
  1. AMBRISENTAN [Suspect]
     Indication: PULMONARY HYPERTENSION
     Dates: start: 20070129, end: 20071107

REACTIONS (1)
  - ABORTION INDUCED [None]
